FAERS Safety Report 16318472 (Version 1)
Quarter: 2019Q2

REPORT INFORMATION
  Report Type: Spontaneous
  Country: US (occurrence: US)
  Receive Date: 20190516
  Receipt Date: 20190516
  Transmission Date: 20190711
  Serious: Yes (Other)
  Sender: FDA-Public Use
  Company Number: US-TEVA-2019-US-1049603

PATIENT
  Age: 25 Year
  Sex: Male

DRUGS (9)
  1. ADVAIR DISKUS [Concomitant]
     Active Substance: FLUTICASONE PROPIONATE\SALMETEROL XINAFOATE
     Indication: ASTHMA
     Dosage: FLUTICASONE-PROPIONATE/SALMETEROL 250MICROGRAM/50MICROGRAM 2 PUFFS TWICE DAILY
     Route: 055
  2. SINGULAIR [Concomitant]
     Active Substance: MONTELUKAST SODIUM
     Indication: ASTHMA
     Route: 065
  3. ADVAIR DISKUS [Concomitant]
     Active Substance: FLUTICASONE PROPIONATE\SALMETEROL XINAFOATE
     Indication: ASTHMA
     Dosage: FLUTICASONE-PROPIONATE/SALMETEROL 100MICROGRAM/50MICROGRAM 4 PUFFS TWICE DAILY
     Route: 055
  4. FLUTICASONE PROPIONATE/ SALMETEROL HFA [Concomitant]
     Indication: RHINITIS ALLERGIC
  5. PROAIR HFA [Suspect]
     Active Substance: ALBUTEROL SULFATE
     Indication: ASTHMA
     Dosage: 2 PUFFS EVERY 20MINUTES AS NEEDED FOR SHORTNESS OF BREATH; LATER FREQUENCY INCREASED TO 4-5 TIMES...
     Route: 055
  6. XOPENEX HFA [Suspect]
     Active Substance: LEVALBUTEROL TARTRATE
     Indication: PULMONARY FUNCTION TEST
     Dosage: 4 PUFFS ADMINISTERED DURING PULMONARY FUNCTION TEST
     Route: 055
  7. ADVAIR DISKUS [Concomitant]
     Active Substance: FLUTICASONE PROPIONATE\SALMETEROL XINAFOATE
     Indication: RHINITIS ALLERGIC
  8. SINGULAIR [Concomitant]
     Active Substance: MONTELUKAST SODIUM
     Indication: RHINITIS ALLERGIC
  9. FLUTICASONE PROPIONATE/ SALMETEROL HFA [Concomitant]
     Indication: ASTHMA
     Route: 055

REACTIONS (1)
  - Bronchospasm paradoxical [Recovered/Resolved]
